FAERS Safety Report 24273518 (Version 1)
Quarter: 2024Q3

REPORT INFORMATION
  Report Type: Spontaneous
  Country: CN (occurrence: CN)
  Receive Date: 20240902
  Receipt Date: 20240902
  Transmission Date: 20241016
  Serious: Yes (Other)
  Sender: PFIZER
  Company Number: CN-PFIZER INC-PV202400112534

PATIENT
  Age: 23 Year
  Sex: Female
  Weight: 55 kg

DRUGS (9)
  1. METHYLPREDNISOLONE [Suspect]
     Active Substance: METHYLPREDNISOLONE
     Indication: Rheumatic disorder
     Dosage: 40 MG, 1X/DAY
     Route: 048
     Dates: start: 20230805
  2. METHYLPREDNISOLONE [Suspect]
     Active Substance: METHYLPREDNISOLONE
     Dosage: 20 MG, 2X/DAY
     Route: 048
     Dates: start: 20230806, end: 20230807
  3. METHYLPREDNISOLONE SODIUM SUCCINATE [Suspect]
     Active Substance: METHYLPREDNISOLONE SODIUM SUCCINATE
     Indication: Rheumatic disorder
     Dosage: 50 MG, 1X/DAY
     Route: 042
     Dates: start: 20230803
  4. METHYLPREDNISOLONE SODIUM SUCCINATE [Suspect]
     Active Substance: METHYLPREDNISOLONE SODIUM SUCCINATE
     Dosage: 80 MG, 1X/DAY
     Route: 042
     Dates: start: 20230809, end: 20230815
  5. METHOTREXATE [Suspect]
     Active Substance: METHOTREXATE
     Indication: Rheumatic disorder
     Dosage: 10 MG, WEEKLY (ONCE EVERY 7 DAYS)
     Route: 048
     Dates: start: 20230803, end: 20230816
  6. SULFADIAZINE [Suspect]
     Active Substance: SULFADIAZINE
     Indication: Prophylaxis
     Dosage: 2 DF, 1X/DAY (QD)
     Route: 048
     Dates: start: 20230806
  7. SULFAMETHOXAZOLE\TRIMETHOPRIM [Suspect]
     Active Substance: SULFAMETHOXAZOLE\TRIMETHOPRIM
     Dosage: 2 DF, 2X/WEEK (BIW)
     Route: 048
     Dates: start: 20230807, end: 20230816
  8. ESOMEPRAZOLE MAGNESIUM [Suspect]
     Active Substance: ESOMEPRAZOLE MAGNESIUM
     Indication: Therapeutic procedure
     Dosage: 20 MG, 1X/DAY
     Route: 048
     Dates: start: 20230803, end: 20230807
  9. CALCIUM CARBONATE [Concomitant]
     Active Substance: CALCIUM CARBONATE
     Indication: Mineral supplementation
     Dosage: UNK
     Dates: start: 20230803

REACTIONS (1)
  - Drug-induced liver injury [Recovering/Resolving]

NARRATIVE: CASE EVENT DATE: 20230807
